FAERS Safety Report 4758470-5 (Version None)
Quarter: 2005Q3

REPORT INFORMATION
  Report Type: 
  Country: None (occurrence: None)
  Receive Date: 20050901
  Receipt Date: 20050824
  Transmission Date: 20060218
  Serious: Yes (Hospitalization)
  Sender: FDA-Public Use
  Company Number: JP-JNJFOC-20050306637

PATIENT
  Sex: Male
  Weight: 56 kg

DRUGS (14)
  1. REMICADE [Suspect]
     Route: 042
  2. REMICADE [Suspect]
     Route: 042
  3. REMICADE [Suspect]
     Indication: RHEUMATOID ARTHRITIS
     Route: 042
  4. METHOTREXATE [Suspect]
     Route: 048
  5. METHOTREXATE [Suspect]
     Route: 048
  6. METHOTREXATE [Suspect]
     Route: 048
  7. PREDONINE [Suspect]
     Route: 048
  8. PREDONINE [Suspect]
     Route: 048
  9. MOBIC [Concomitant]
     Route: 048
  10. RIMATIL [Concomitant]
     Route: 048
  11. CYTOTEC [Concomitant]
     Indication: PROPHYLAXIS
     Route: 048
  12. JUVELA N [Concomitant]
     Route: 048
  13. DIFLUCAN [Concomitant]
     Route: 048
  14. PYDOXAL [Concomitant]
     Indication: PROPHYLAXIS
     Route: 048

REACTIONS (4)
  - COUGH [None]
  - NASOPHARYNGITIS [None]
  - PNEUMOCYSTIS JIROVECI PNEUMONIA [None]
  - PNEUMONITIS CRYPTOCOCCAL [None]
